FAERS Safety Report 9268332 (Version 2)
Quarter: 2014Q1

REPORT INFORMATION
  Report Type: Report from Study
  Country: US (occurrence: US)
  Receive Date: 20130502
  Receipt Date: 20140211
  Transmission Date: 20141002
  Serious: Yes (Hospitalization, Other)
  Sender: FDA-Public Use
  Company Number: US-ALEXION-A201202036

PATIENT
  Sex: Male
  Weight: 78 kg

DRUGS (11)
  1. SOLIRIS [Suspect]
     Indication: PAROXYSMAL NOCTURNAL HAEMOGLOBINURIA
     Dosage: 600 MG, SINGLE
     Route: 042
     Dates: start: 20090126
  2. SOLIRIS [Suspect]
     Dosage: 600 MG, QW
     Route: 042
     Dates: start: 200902
  3. SOLIRIS [Suspect]
     Dosage: 900 MG, Q2W
     Route: 042
     Dates: start: 200903
  4. METOPROLOL [Concomitant]
     Dosage: 25 MG, QD
  5. FOLIC ACID [Concomitant]
     Dosage: 1 MG, QD
  6. LIPITOR [Concomitant]
     Dosage: 40 MG, QHS
  7. LASIX [Concomitant]
     Dosage: 20 MG, BID
  8. RAMIPRIL [Concomitant]
     Dosage: 2.5 MG, QD
  9. VITAMIN B12 [Concomitant]
     Dosage: 1000 ?G, QD
  10. ASPIRIN [Concomitant]
     Dosage: 81 MG, QD
  11. RESTORIL [Concomitant]
     Dosage: 30 MG, QHS

REACTIONS (5)
  - Cholecystitis chronic [Recovered/Resolved]
  - Anaemia [Unknown]
  - Abscess [Unknown]
  - Thrombosis [Unknown]
  - Periodontal disease [Not Recovered/Not Resolved]
